FAERS Safety Report 5800119-4 (Version None)
Quarter: 2008Q2

REPORT INFORMATION
  Report Type: 
  Country: None (occurrence: None)
  Receive Date: 20080626
  Receipt Date: 20070524
  Transmission Date: 20081010
  Serious: Yes (Other)
  Sender: FDA-Public Use
  Company Number: 499085

PATIENT
  Age: 77 Year
  Sex: Male
  Weight: 73.5 kg

DRUGS (1)
  1. XELODA [Suspect]
     Indication: COLORECTAL CANCER
     Dosage: 2000 MG 2 PER DAY

REACTIONS (2)
  - ASTHENIA [None]
  - DIARRHOEA [None]
